FAERS Safety Report 25304109 (Version 3)
Quarter: 2025Q3

REPORT INFORMATION
  Report Type: Report from Study
  Country: US (occurrence: US)
  Receive Date: 20250513
  Receipt Date: 20250824
  Transmission Date: 20251020
  Serious: Yes (Other)
  Sender: ABBVIE
  Company Number: US-ABBVIE-6273620

PATIENT
  Age: 73 Year
  Sex: Female
  Weight: 81.646 kg

DRUGS (9)
  1. HUMIRA [Suspect]
     Active Substance: ADALIMUMAB
     Indication: Uveitis
     Dosage: FORM STRENGTH : 40 MILLIGRAM?SOLUTION FOR INJECTION IN PRE-FILLED SYRINGE
     Route: 058
     Dates: start: 20201210
  2. MEMANTINE [Concomitant]
     Active Substance: MEMANTINE
     Indication: Eye disorder
  3. DIFLUPREDNATE [Concomitant]
     Active Substance: DIFLUPREDNATE
     Indication: Eye disorder
  4. Muron [Concomitant]
     Indication: Eye disorder
  5. RHOPRESSA [Concomitant]
     Active Substance: NETARSUDIL MESYLATE
     Indication: Eye disorder
  6. ATORVASTATIN [Concomitant]
     Active Substance: ATORVASTATIN
     Indication: Blood cholesterol abnormal
  7. LOSARTAN [Concomitant]
     Active Substance: LOSARTAN
     Indication: Hypertension
  8. VALACYCLOVIR HYDROCHLORIDE [Concomitant]
     Active Substance: VALACYCLOVIR HYDROCHLORIDE
     Indication: Eye disorder
  9. TIMOLOL [Concomitant]
     Active Substance: TIMOLOL
     Indication: Ocular discomfort

REACTIONS (6)
  - Retinal operation [Unknown]
  - Glaucoma [Not Recovered/Not Resolved]
  - Eye inflammation [Unknown]
  - Infrequent bowel movements [Not Recovered/Not Resolved]
  - Corneal transplant [Unknown]
  - Corneal transplant [Unknown]

NARRATIVE: CASE EVENT DATE: 20210101
